FAERS Safety Report 15734223 (Version 1)
Quarter: 2018Q4

REPORT INFORMATION
  Report Type: Spontaneous
  Country: US (occurrence: US)
  Receive Date: 20181203
  Receipt Date: 20181203
  Transmission Date: 20190205
  Serious: Yes (Hospitalization)
  Sender: FDA-Public Use
  Company Number: None

PATIENT
  Age: 58 Year
  Sex: Male
  Weight: 68 kg

DRUGS (6)
  1. VENETOCLAX. [Suspect]
     Active Substance: VENETOCLAX
     Indication: CHRONIC LYMPHOCYTIC LEUKAEMIA REFRACTORY
     Route: 048
     Dates: start: 20180620, end: 20181102
  2. LISINOPRIL -HYDROCHLOROTHIAZIDE [Concomitant]
  3. VENETOCLAX. [Suspect]
     Active Substance: VENETOCLAX
     Indication: LEUKAEMIA RECURRENT
     Route: 048
     Dates: start: 20180620, end: 20181102
  4. RITUXIMAB HYCELA [Suspect]
     Active Substance: RITUXIMAB
     Indication: LEUKAEMIA RECURRENT
     Dosage: ?          OTHER FREQUENCY:Q28 DAYS;?
     Route: 058
     Dates: start: 20180620, end: 20181107
  5. VENDEXTA [Concomitant]
  6. ZYRTEC [Concomitant]
     Active Substance: CETIRIZINE HYDROCHLORIDE

REACTIONS (2)
  - Influenza [None]
  - Febrile neutropenia [None]

NARRATIVE: CASE EVENT DATE: 20181202
